FAERS Safety Report 8133072-1 (Version None)
Quarter: 2012Q1

REPORT INFORMATION
  Report Type: 
  Country: None (occurrence: None)
  Receive Date: 20120213
  Receipt Date: 20120203
  Transmission Date: 20120608
  Serious: Yes (Hospitalization)
  Sender: FDA-Public Use
  Company Number: PHHY2012DE007990

PATIENT
  Sex: Male
  Weight: 100 kg

DRUGS (13)
  1. RASILEZ [Suspect]
     Indication: HYPERTENSION
     Dosage: 150 MG/DAY
     Route: 048
     Dates: start: 20090409
  2. RASILEZ [Suspect]
     Dosage: 300 MG/DAY
     Route: 048
     Dates: end: 20111010
  3. NITROLINGUAL [Concomitant]
     Indication: MYOCARDIAL ISCHAEMIA
     Dates: start: 20090409
  4. VALSARTAN [Suspect]
     Dosage: 160 MG/DAY
     Route: 048
  5. ASPIRIN [Concomitant]
     Indication: MYOCARDIAL ISCHAEMIA
     Dosage: 100 MG/DAY
     Route: 048
     Dates: start: 20090409
  6. PANTOPRAZOLE [Concomitant]
     Indication: GASTROOESOPHAGEAL REFLUX DISEASE
     Dosage: 40 MG/DAY
     Route: 048
     Dates: start: 20090409
  7. CLOPIDOGREL [Concomitant]
  8. PROVAS MAXX [Suspect]
     Dosage: 1 DF PER DAY
     Route: 048
     Dates: start: 20110115
  9. VALSARTAN  AND HYDROCHLOROTHIAZIDE [Suspect]
     Dosage: 1 DF, (25/160 MG) PER DAY
     Route: 048
     Dates: end: 20110114
  10. BETA BLOCKING AGENTS [Concomitant]
  11. ORAL ANTIDIABETICS [Concomitant]
     Indication: DIABETES MELLITUS
     Route: 048
  12. AMLODIPINE [Concomitant]
     Dates: end: 20120104
  13. THIENOPYRIDINES [Concomitant]

REACTIONS (1)
  - ANGINA PECTORIS [None]
